FAERS Safety Report 12805660 (Version 3)
Quarter: 2023Q2

REPORT INFORMATION
  Report Type: Spontaneous
  Country: GB (occurrence: GB)
  Receive Date: 20161004
  Receipt Date: 20230404
  Transmission Date: 20230722
  Serious: Yes (Life-Threatening, Other)
  Sender: FDA-Public Use
  Company Number: GB-MLMSERVICE-20160803-0374913-1

PATIENT
  Age: 65 Year
  Sex: Male

DRUGS (18)
  1. ZOLEDRONIC ACID [Suspect]
     Active Substance: ZOLEDRONIC ACID
     Indication: Product used for unknown indication
     Route: 042
     Dates: start: 2011
  2. GEMCITABINE [Suspect]
     Active Substance: GEMCITABINE
     Indication: Metastases to liver
     Route: 065
     Dates: start: 2011
  3. GEMCITABINE [Suspect]
     Active Substance: GEMCITABINE
     Indication: Metastases to bone
  4. GEMCITABINE [Suspect]
     Active Substance: GEMCITABINE
     Indication: Metastases to lung
  5. GEMCITABINE [Suspect]
     Active Substance: GEMCITABINE
     Indication: Neoplasm progression
  6. EXEMESTANE [Suspect]
     Active Substance: EXEMESTANE
     Indication: Metastases to bone
     Route: 065
     Dates: start: 2011
  7. EXEMESTANE [Suspect]
     Active Substance: EXEMESTANE
     Indication: Metastases to lung
  8. EXEMESTANE [Suspect]
     Active Substance: EXEMESTANE
     Indication: Neoplasm progression
  9. EXEMESTANE [Suspect]
     Active Substance: EXEMESTANE
     Indication: Metastases to liver
  10. PACLITAXEL [Suspect]
     Active Substance: PACLITAXEL
     Indication: Neoplasm progression
     Route: 065
     Dates: start: 2011
  11. PACLITAXEL [Suspect]
     Active Substance: PACLITAXEL
     Indication: Metastases to lung
  12. PACLITAXEL [Suspect]
     Active Substance: PACLITAXEL
     Indication: Metastases to bone
  13. PACLITAXEL [Suspect]
     Active Substance: PACLITAXEL
     Indication: Metastases to liver
  14. CALCIUM [Suspect]
     Active Substance: CALCIUM
     Indication: Supplementation therapy
     Route: 065
     Dates: start: 2011
  15. CALCIUM [Suspect]
     Active Substance: CALCIUM
     Indication: Metastases to bone
  16. CALCIUM [Suspect]
     Active Substance: CALCIUM
     Indication: Metastases to lung
  17. CALCIUM [Suspect]
     Active Substance: CALCIUM
     Indication: Neoplasm progression
  18. VITAMIN D [Suspect]
     Active Substance: VITAMIN D NOS
     Indication: Supplementation therapy
     Route: 065
     Dates: start: 2011

REACTIONS (2)
  - Febrile neutropenia [Not Recovered/Not Resolved]
  - Drug ineffective [Unknown]
